FAERS Safety Report 4551428-0 (Version None)
Quarter: 2005Q1

REPORT INFORMATION
  Report Type: 
  Country: None (occurrence: None)
  Receive Date: 20050107
  Receipt Date: 20041227
  Transmission Date: 20050727
  Serious: Yes (Life-Threatening, Hospitalization, Disabling)
  Sender: FDA-Public Use
  Company Number: F01200404023

PATIENT
  Age: 49 Year
  Sex: Female

DRUGS (6)
  1. ELOXATIN - (OXALIPLATIN) - SOLUTION - 100 MG/M2 [Suspect]
     Indication: ADENOCARCINOMA
     Dosage: 160 MG Q2W, INTRAVENOUS NOS
     Route: 042
     Dates: start: 20041216, end: 20041216
  2. ELOXATIN - (OXALIPLATIN) - SOLUTION - 100 MG/M2 [Suspect]
     Indication: COLORECTAL CANCER
     Dosage: 160 MG Q2W, INTRAVENOUS NOS
     Route: 042
     Dates: start: 20041216, end: 20041216
  3. ELOXATIN - (OXALIPLATIN) - SOLUTION - 100 MG/M2 [Suspect]
     Indication: METASTASES TO LIVER
     Dosage: 160 MG Q2W, INTRAVENOUS NOS
     Route: 042
     Dates: start: 20041216, end: 20041216
  4. FLUOROURACIL [Suspect]
     Dosage: 4480 MG (400 MG/M2 BOLUS ON D1 AND 2 AND 2.4-3 G/M2 CONTINUOUS INFUSION FOR 46H ON D1) Q2W, INTRAVEN
     Route: 042
     Dates: start: 20041216, end: 20041217
  5. LEUCOVORIN CALCIUM [Suspect]
     Dosage: 400 MG/M2 ON D1 AND D2) Q2W INTRAVENOUS
     Route: 042
     Dates: start: 20041216, end: 20041217
  6. ANTHRACYCLINES [Concomitant]

REACTIONS (1)
  - PERICARDITIS [None]
